FAERS Safety Report 8401006-8 (Version None)
Quarter: 2012Q2

REPORT INFORMATION
  Report Type: 
  Country: None (occurrence: None)
  Receive Date: 20120601
  Receipt Date: 20120523
  Transmission Date: 20120825
  Serious: No
  Sender: FDA-Public Use
  Company Number: US-BIOGENIDEC-2012BI018334

PATIENT
  Sex: Female

DRUGS (2)
  1. CYMBALTA [Concomitant]
     Indication: MAJOR DEPRESSION
  2. AVONEX [Suspect]
     Indication: MULTIPLE SCLEROSIS
     Route: 030
     Dates: start: 20120111

REACTIONS (1)
  - CYSTITIS INTERSTITIAL [None]
